FAERS Safety Report 8169108-1 (Version None)
Quarter: 2012Q1

REPORT INFORMATION
  Report Type: 
  Country: None (occurrence: None)
  Receive Date: 20120227
  Receipt Date: 20120225
  Transmission Date: 20120608
  Serious: No
  Sender: FDA-Public Use
  Company Number: US-PFIZER INC-2012050047

PATIENT
  Sex: Female
  Weight: 68 kg

DRUGS (6)
  1. BYSTOLIC [Concomitant]
     Dosage: 2.5 MG, DAILY
     Route: 048
  2. ASPIRIN [Concomitant]
     Dosage: 325 MG, UNK
     Route: 048
  3. LYRICA [Suspect]
     Indication: HERPES ZOSTER
     Dosage: 75 MG, DAILY
     Route: 048
     Dates: start: 20120203
  4. CRESTOR [Concomitant]
     Dosage: 5 MG, DAILY
     Route: 048
  5. ACETAMINOPHEN [Suspect]
     Indication: INSOMNIA
     Dosage: UNK
     Route: 048
     Dates: start: 20120201
  6. DIOVAN HCT [Concomitant]
     Dosage: 160/12.5 MG
     Route: 048

REACTIONS (7)
  - DISTURBANCE IN ATTENTION [None]
  - DRUG INEFFECTIVE [None]
  - MYALGIA [None]
  - PARAESTHESIA [None]
  - VISION BLURRED [None]
  - OEDEMA PERIPHERAL [None]
  - INSOMNIA [None]
